FAERS Safety Report 6525879-9 (Version None)
Quarter: 2009Q4

REPORT INFORMATION
  Report Type: 
  Country: None (occurrence: None)
  Receive Date: 20091228
  Receipt Date: 20091221
  Transmission Date: 20100525
  Serious: Yes (Hospitalization)
  Sender: FDA-Public Use
  Company Number: 230325J09BRA

PATIENT
  Age: 45 Year
  Sex: Female

DRUGS (12)
  1. REBIF [Suspect]
     Indication: OFF LABEL USE
     Dosage: 44 MCG, 3 IN 1 WEEKS; 44 MCG, 3 IN 1WEEKS
     Dates: start: 20071120, end: 20091010
  2. REBIF [Suspect]
     Indication: PRIMARY PROGRESSIVE MULTIPLE SCLEROSIS
     Dosage: 44 MCG, 3 IN 1 WEEKS; 44 MCG, 3 IN 1WEEKS
     Dates: start: 20071120, end: 20091010
  3. REBIF [Suspect]
     Indication: OFF LABEL USE
     Dosage: 44 MCG, 3 IN 1 WEEKS; 44 MCG, 3 IN 1WEEKS
     Dates: start: 20091207
  4. REBIF [Suspect]
     Indication: PRIMARY PROGRESSIVE MULTIPLE SCLEROSIS
     Dosage: 44 MCG, 3 IN 1 WEEKS; 44 MCG, 3 IN 1WEEKS
     Dates: start: 20091207
  5. RETEMIC (OXYBUTYNIN HYDROCHLORIDE) [Concomitant]
  6. ATENOLOL [Concomitant]
  7. SERTRALINE HYDROCHLORIDE [Concomitant]
  8. BACLOFEN [Concomitant]
  9. GLIFAGE XR (METFORMIN HYDROCHLORIDE) [Concomitant]
  10. BORAGO OFFICINALIS (BORAGO OFFICINALIS) [Concomitant]
  11. FELDENE (PIROXICAM / 00500401/) [Concomitant]
  12. THRAZODONE HYDROCHLORIDE (DONAREN) (TRAZODONE HYDROCHLORIDE) [Concomitant]

REACTIONS (4)
  - CHOKING [None]
  - OFF LABEL USE [None]
  - PNEUMONIA [None]
  - RESPIRATORY TRACT INFECTION [None]
